FAERS Safety Report 9549945 (Version 1)
Quarter: 2013Q3

REPORT INFORMATION
  Report Type: Report from Study
  Country: BR (occurrence: BR)
  Receive Date: 20130924
  Receipt Date: 20130924
  Transmission Date: 20140515
  Serious: Yes (Hospitalization)
  Sender: FDA-Public Use
  Company Number: ALCN2013BR002723

PATIENT
  Sex: 0

DRUGS (2)
  1. TRAVATAN [Suspect]
     Indication: INTRAOCULAR PRESSURE INCREASED
     Route: 047
     Dates: start: 2009, end: 2009
  2. TRAVATAN [Suspect]
     Route: 047

REACTIONS (1)
  - Neuralgia [Recovering/Resolving]
